FAERS Safety Report 15281854 (Version 1)
Quarter: 2018Q3

REPORT INFORMATION
  Report Type: Spontaneous
  Country: US (occurrence: US)
  Receive Date: 20180815
  Receipt Date: 20180815
  Transmission Date: 20181010
  Serious: Yes (Hospitalization, Other)
  Sender: FDA-Public Use
  Company Number: US-PRINSTON PHARMACEUTICAL INC.-2018PRN00679

PATIENT
  Age: 65 Year
  Sex: Female
  Weight: 231.29 kg

DRUGS (8)
  1. VALSARTAN. [Suspect]
     Active Substance: VALSARTAN
     Indication: HYPERTENSION
     Dosage: 320 MG, 1X/DAY
     Route: 048
     Dates: start: 2013, end: 201807
  2. ESTRADIOL. [Concomitant]
     Active Substance: ESTRADIOL
     Dosage: UNK
     Dates: start: 1998
  3. LEVOTHYROXINE. [Concomitant]
     Active Substance: LEVOTHYROXINE
  4. SUPER B COMPLEX [Concomitant]
     Active Substance: CYANOCOBALAMIN\DEXPANTHENOL\NIACINAMIDE\PYRIDOXINE HYDROCHLORIDE\RIBOFLAVIN 5^-PHOSPHATE SODIUM\THIAMINE HYDROCHLORIDE\VITAMIN B COMPLEX
  5. PANTOPRAZOLE [Concomitant]
     Active Substance: PANTOPRAZOLE
  6. MULTIVITAMIN [Concomitant]
     Active Substance: VITAMINS
  7. DIPHENHYDRAMINE. [Concomitant]
     Active Substance: DIPHENHYDRAMINE
     Dosage: UNK, AS NEEDED
  8. UNSPECIFIED OTC MEDICATION FOR GAS [Concomitant]
     Dosage: UNK, AS NEEDED

REACTIONS (10)
  - Hepatobiliary cancer [Not Recovered/Not Resolved]
  - Muscular weakness [Unknown]
  - Flatulence [Unknown]
  - Lung neoplasm malignant [Not Recovered/Not Resolved]
  - Hepatic cancer metastatic [Not Recovered/Not Resolved]
  - Cholelithiasis [Unknown]
  - Bone cancer [Not Recovered/Not Resolved]
  - Metastases to lymph nodes [Not Recovered/Not Resolved]
  - Red blood cell count decreased [Not Recovered/Not Resolved]
  - Blood pressure fluctuation [Unknown]

NARRATIVE: CASE EVENT DATE: 2015
